FAERS Safety Report 9291778 (Version 3)
Quarter: 2013Q3

REPORT INFORMATION
  Report Type: Spontaneous
  Country: US (occurrence: US)
  Receive Date: 20130516
  Receipt Date: 20130723
  Transmission Date: 20140515
  Serious: Yes (Hospitalization, Other)
  Sender: FDA-Public Use
  Company Number: US-BIOGENIDEC-168152

PATIENT
  Age: 44 Year
  Sex: Female
  Weight: 82 kg

DRUGS (4)
  1. AVONEX [Suspect]
     Indication: MULTIPLE SCLEROSIS
     Route: 030
     Dates: start: 20000911
  2. AVONEX [Suspect]
     Indication: MULTIPLE SCLEROSIS
     Route: 030
     Dates: end: 20061217
  3. AVONEX [Suspect]
     Indication: MULTIPLE SCLEROSIS
     Route: 030
     Dates: start: 20070422
  4. MELATONIN [Concomitant]
     Indication: SLEEP DISORDER

REACTIONS (11)
  - Invasive ductal breast carcinoma [Unknown]
  - Breast calcifications [Not Recovered/Not Resolved]
  - Ovarian cancer [Recovered/Resolved]
  - Multiple sclerosis [Recovered/Resolved]
  - Nuclear magnetic resonance imaging abnormal [Not Recovered/Not Resolved]
  - Memory impairment [Not Recovered/Not Resolved]
  - Balance disorder [Not Recovered/Not Resolved]
  - Feeling abnormal [Recovered/Resolved]
  - Fatigue [Not Recovered/Not Resolved]
  - Asthenia [Not Recovered/Not Resolved]
  - Headache [Recovered/Resolved]
